FAERS Safety Report 12637200 (Version 1)
Quarter: 2016Q3

REPORT INFORMATION
  Report Type: Spontaneous
  Country: US (occurrence: US)
  Receive Date: 20160809
  Receipt Date: 20160809
  Transmission Date: 20161109
  Serious: No
  Sender: FDA-Public Use
  Company Number: US-BEH-2015053967

PATIENT
  Sex: Male
  Weight: 100 kg

DRUGS (37)
  1. VENLAFAXINE [Concomitant]
     Active Substance: VENLAFAXINE HYDROCHLORIDE
  2. ROPINIROLE. [Concomitant]
     Active Substance: ROPINIROLE
  3. SODIUM CHLORIDE. [Concomitant]
     Active Substance: SODIUM CHLORIDE
  4. FLUTICASONE [Concomitant]
     Active Substance: FLUTICASONE\FLUTICASONE PROPIONATE
  5. WELLBUTRIN [Concomitant]
     Active Substance: BUPROPION HYDROCHLORIDE
  6. PROAIR HFA [Concomitant]
     Active Substance: ALBUTEROL SULFATE
  7. EPIPEN [Concomitant]
     Active Substance: EPINEPHRINE
  8. PRIVIGEN [Suspect]
     Active Substance: HUMAN IMMUNOGLOBULIN G
     Route: 042
  9. ALLOPURINOL. [Concomitant]
     Active Substance: ALLOPURINOL
  10. DIPHENHYDRAMINE. [Concomitant]
     Active Substance: DIPHENHYDRAMINE
  11. MAGNESIUM [Concomitant]
     Active Substance: MAGNESIUM
  12. FISH OIL [Concomitant]
     Active Substance: FISH OIL
  13. NEXIUM [Concomitant]
     Active Substance: ESOMEPRAZOLE MAGNESIUM
  14. METHOTREXATE. [Concomitant]
     Active Substance: METHOTREXATE
  15. GABAPENTIN. [Concomitant]
     Active Substance: GABAPENTIN
  16. PRILOSEC [Concomitant]
     Active Substance: OMEPRAZOLE MAGNESIUM
  17. STRATTERA [Concomitant]
     Active Substance: ATOMOXETINE HYDROCHLORIDE
  18. SINGULAIR [Concomitant]
     Active Substance: MONTELUKAST SODIUM
  19. PRIVIGEN [Suspect]
     Active Substance: HUMAN IMMUNOGLOBULIN G
     Indication: IMMUNODEFICIENCY COMMON VARIABLE
     Route: 042
  20. LISINOPRIL. [Concomitant]
     Active Substance: LISINOPRIL
  21. GAS-X [Concomitant]
     Active Substance: DIMETHICONE
  22. TRAMADOL. [Concomitant]
     Active Substance: TRAMADOL
  23. FENOFIBRATE. [Concomitant]
     Active Substance: FENOFIBRATE
  24. OXCARBAZEPINE. [Concomitant]
     Active Substance: OXCARBAZEPINE
  25. METFORMIN [Concomitant]
     Active Substance: METFORMIN HYDROCHLORIDE
  26. MECLIZINE [Concomitant]
     Active Substance: MECLIZINE HYDROCHLORIDE
  27. ALLEGRA [Concomitant]
     Active Substance: FEXOFENADINE HYDROCHLORIDE
  28. ACETAMINOPHEN. [Concomitant]
     Active Substance: ACETAMINOPHEN
  29. LIDOCAINE. [Concomitant]
     Active Substance: LIDOCAINE
  30. FOLIC ACID. [Concomitant]
     Active Substance: FOLIC ACID
  31. PRAVACHOL [Concomitant]
     Active Substance: PRAVASTATIN SODIUM
  32. LAMOTRIGINE. [Concomitant]
     Active Substance: LAMOTRIGINE
  33. NIACOR [Concomitant]
     Active Substance: NIACIN
  34. MELOXICAM. [Concomitant]
     Active Substance: MELOXICAM
  35. METOCLOPRAMIDE. [Concomitant]
     Active Substance: METOCLOPRAMIDE
  36. LEVOFLOXACIN. [Concomitant]
     Active Substance: LEVOFLOXACIN
  37. INDOMETHACIN. [Concomitant]
     Active Substance: INDOMETHACIN

REACTIONS (2)
  - Dizziness [Unknown]
  - Nausea [Unknown]
